FAERS Safety Report 5573794-X (Version None)
Quarter: 2007Q4

REPORT INFORMATION
  Report Type: 
  Country: None (occurrence: None)
  Receive Date: 20071226
  Receipt Date: 20071218
  Transmission Date: 20080405
  Serious: Yes (Hospitalization, Other)
  Sender: FDA-Public Use
  Company Number: PHBS2007BE21178

PATIENT
  Age: 40 Year
  Sex: Male

DRUGS (5)
  1. TEGRETOL [Suspect]
     Dosage: 1000 MG, UNK
     Dates: start: 19840101
  2. LAMICTAL [Suspect]
     Dosage: 300 MG, QD
     Dates: start: 19990101
  3. XALATAN [Concomitant]
  4. XALACOM [Suspect]
  5. CORTICOSTEROIDS [Concomitant]
     Dates: start: 20070801

REACTIONS (4)
  - BLOOD PRESSURE INCREASED [None]
  - DRUG INTERACTION [None]
  - EYE OPERATION [None]
  - GLAUCOMA [None]
